FAERS Safety Report 7118124-7 (Version None)
Quarter: 2010Q4

REPORT INFORMATION
  Report Type: 
  Country: None (occurrence: None)
  Receive Date: 20101123
  Receipt Date: 20101117
  Transmission Date: 20110411
  Serious: No
  Sender: FDA-Public Use
  Company Number: US-PFIZER INC-2010151218

PATIENT
  Sex: Female
  Weight: 72.562 kg

DRUGS (2)
  1. SOMAVERT [Suspect]
     Indication: BLOOD GROWTH HORMONE INCREASED
     Dosage: 10 MG, DAILY
     Route: 058
     Dates: start: 20101104
  2. ZOLOFT [Concomitant]
     Indication: DEPRESSION
     Dosage: UNK

REACTIONS (4)
  - BACK PAIN [None]
  - INJECTION SITE ERYTHEMA [None]
  - INJECTION SITE PRURITUS [None]
  - PAIN [None]
